FAERS Safety Report 22173493 (Version 2)
Quarter: 2023Q2

REPORT INFORMATION
  Report Type: Spontaneous
  Country: US (occurrence: US)
  Receive Date: 20230404
  Receipt Date: 20230509
  Transmission Date: 20230721
  Serious: Yes (Other)
  Sender: FDA-Public Use
  Company Number: US-PFIZER INC-PV202300059905

PATIENT
  Age: 54 Year
  Sex: Male

DRUGS (1)
  1. LORBRENA [Suspect]
     Active Substance: LORLATINIB
     Indication: Lung neoplasm malignant
     Dosage: 25 MG, DAILY
     Route: 048

REACTIONS (8)
  - Deep vein thrombosis [Unknown]
  - Pulmonary embolism [Unknown]
  - Major depression [Unknown]
  - Genital prolapse [Unknown]
  - Raynaud^s phenomenon [Unknown]
  - Diverticulum intestinal [Unknown]
  - Tendon injury [Unknown]
  - Skin laceration [Unknown]
